FAERS Safety Report 16808125 (Version 2)
Quarter: 2019Q4

REPORT INFORMATION
  Report Type: Report from Study
  Country: GB (occurrence: GB)
  Receive Date: 20190916
  Receipt Date: 20191001
  Transmission Date: 20200122
  Serious: Yes (Other)
  Sender: FDA-Public Use
  Company Number: GB-TEVA-2019-GB-1106379

PATIENT
  Age: 55 Year
  Sex: Female

DRUGS (10)
  1. PERTUZUMAB. [Suspect]
     Active Substance: PERTUZUMAB
     Route: 042
     Dates: start: 20151224
  2. TRASTUZUMAB. [Suspect]
     Active Substance: TRASTUZUMAB
     Dosage: DRUG DISCONTINUED
     Route: 042
     Dates: start: 20150708, end: 20150708
  3. ANASTROZOLE. [Suspect]
     Active Substance: ANASTROZOLE
     Indication: HER-2 POSITIVE BREAST CANCER
     Dosage: 1 MG/ DAY
     Route: 048
     Dates: start: 20151202
  4. TRASTUZUMAB. [Suspect]
     Active Substance: TRASTUZUMAB
     Route: 042
     Dates: start: 20150730, end: 20151224
  5. PERTUZUMAB. [Suspect]
     Active Substance: PERTUZUMAB
     Indication: HER-2 POSITIVE BREAST CANCER
     Dosage: DRUG DISCONTINUED, 840MG, 3 WEEKS
     Route: 042
     Dates: start: 20150709, end: 20150709
  6. TRASTUZUMAB. [Suspect]
     Active Substance: TRASTUZUMAB
     Indication: HER-2 POSITIVE BREAST CANCER
     Dosage: 441MG/ 3 WEEKS
     Route: 042
     Dates: start: 20151224
  7. ZOMORPH [Concomitant]
     Active Substance: MORPHINE SULFATE
     Dosage: 10MG/DAY
     Route: 048
     Dates: start: 20150703
  8. NITROFURANTOIN. [Concomitant]
     Active Substance: NITROFURANTOIN
     Indication: URINARY TRACT INFECTION
     Dosage: 100MG
     Route: 048
     Dates: start: 20170125
  9. DOCETAXEL. [Suspect]
     Active Substance: DOCETAXEL
     Indication: HER-2 POSITIVE BREAST CANCER
     Dosage: DRUG DISCONTINUED, 140 MG/ 105 DAYS
     Route: 042
     Dates: start: 20150709, end: 20151022
  10. SALBUTAMOL [Concomitant]
     Active Substance: ALBUTEROL
     Dosage: 1 DAY
     Route: 055

REACTIONS (1)
  - Lower respiratory tract infection [Recovered/Resolved]

NARRATIVE: CASE EVENT DATE: 201601
